FAERS Safety Report 7063301-7 (Version None)
Quarter: 2010Q4

REPORT INFORMATION
  Report Type: 
  Country: None (occurrence: None)
  Receive Date: 20101026
  Receipt Date: 20100628
  Transmission Date: 20110411
  Serious: No
  Sender: FDA-Public Use
  Company Number: US-PFIZER INC-2010081211

PATIENT
  Sex: Female
  Weight: 91 kg

DRUGS (4)
  1. LIPITOR [Suspect]
     Indication: ARTERIAL OCCLUSIVE DISEASE
     Dosage: 20 MG, 1X/DAY
     Route: 048
     Dates: start: 20091201
  2. LIPITOR [Suspect]
     Indication: CHEST PAIN
     Dosage: 40 MG, 1X/DAY
     Route: 048
     Dates: start: 20100301, end: 20100101
  3. HYDROCHLOROTHIAZIDE [Concomitant]
     Indication: HYPERTENSION
     Dosage: UNK
  4. BISOPROLOL [Concomitant]
     Indication: HYPERTENSION
     Dosage: UNK

REACTIONS (3)
  - DRUG INEFFECTIVE [None]
  - MYALGIA [None]
  - NAUSEA [None]
